FAERS Safety Report 13107658 (Version 2)
Quarter: 2017Q1

REPORT INFORMATION
  Report Type: Report from Study
  Country: None (occurrence: US)
  Receive Date: 20170112
  Receipt Date: 20170222
  Transmission Date: 20170428
  Serious: Yes (Other)
  Sender: FDA-Public Use
  Company Number: US-ABBVIE-17K-163-1833292-00

PATIENT
  Age: 25 Year
  Sex: Female
  Weight: 42.68 kg

DRUGS (3)
  1. HUMIRA [Suspect]
     Active Substance: ADALIMUMAB
     Route: 058
     Dates: start: 20170104
  2. HUMIRA [Suspect]
     Active Substance: ADALIMUMAB
     Indication: CROHN^S DISEASE
     Route: 058
     Dates: start: 2009, end: 20170103
  3. MERCAPTOPURINE. [Concomitant]
     Active Substance: MERCAPTOPURINE
     Indication: PRODUCT USED FOR UNKNOWN INDICATION

REACTIONS (8)
  - Gastrointestinal stoma complication [Not Recovered/Not Resolved]
  - Gastrointestinal tract mucosal discolouration [Not Recovered/Not Resolved]
  - Fatigue [Recovered/Resolved]
  - Abnormal faeces [Recovered/Resolved]
  - Malnutrition [Recovered/Resolved]
  - Gastrointestinal stenosis [Recovered/Resolved]
  - Stoma site pain [Not Recovered/Not Resolved]
  - Stoma site reaction [Not Recovered/Not Resolved]

NARRATIVE: CASE EVENT DATE: 201608
